FAERS Safety Report 5426257-6 (Version None)
Quarter: 2007Q3

REPORT INFORMATION
  Report Type: 
  Country: None (occurrence: None)
  Receive Date: 20070827
  Receipt Date: 20070821
  Transmission Date: 20080115
  Serious: Yes (Disabling)
  Sender: FDA-Public Use
  Company Number: US-MERCK-0707USA02329

PATIENT
  Age: 65 Year
  Sex: Female
  Weight: 100 kg

DRUGS (8)
  1. JANUVIA [Suspect]
     Route: 048
     Dates: start: 20070501, end: 20070529
  2. LANTUS [Concomitant]
     Indication: DIABETES MELLITUS
     Route: 058
  3. [THERAPY UNSPECIFIED] [Concomitant]
     Route: 058
  4. LASIX [Concomitant]
     Route: 048
  5. BENICAR HCT [Concomitant]
     Route: 048
  6. CRESTOR [Concomitant]
     Route: 048
  7. NEXIUM [Concomitant]
     Route: 048
  8. ASPIRIN [Concomitant]
     Route: 048

REACTIONS (5)
  - COUGH [None]
  - DYSPNOEA [None]
  - JOINT SWELLING [None]
  - OFF LABEL USE [None]
  - TACHYPNOEA [None]
